FAERS Safety Report 24384867 (Version 2)
Quarter: 2024Q4

REPORT INFORMATION
  Report Type: Report from Study
  Country: JP (occurrence: JP)
  Receive Date: 20241001
  Receipt Date: 20241202
  Transmission Date: 20250115
  Serious: Yes (Hospitalization)
  Sender: AKEBIA THERAPEUTICS
  Company Number: JP-MTPC-MTPC2024-0020032

PATIENT
  Age: 60 Year
  Sex: Male
  Weight: 99 kg

DRUGS (5)
  1. VADADUSTAT [Suspect]
     Active Substance: VADADUSTAT
     Indication: Nephrogenic anaemia
     Dosage: 150 MILLIGRAM, QD
     Route: 048
     Dates: start: 20220624, end: 20230326
  2. BIXALOMER [Concomitant]
     Active Substance: BIXALOMER
     Indication: Product used for unknown indication
     Dosage: 750 MILLIGRAM, QD
     Route: 048
  3. FERROUS SULFATE [Concomitant]
     Active Substance: FERROUS SULFATE
     Indication: Product used for unknown indication
     Dosage: 105 MILLIGRAM, QD
     Route: 048
  4. AZOSEMIDE [Concomitant]
     Active Substance: AZOSEMIDE
     Indication: Illness
     Dosage: 60 MILLIGRAM, QD
     Route: 048
  5. DARBEPOETIN ALFA [Concomitant]
     Active Substance: DARBEPOETIN ALFA
     Indication: Product used for unknown indication
     Dosage: UNK
     Route: 065

REACTIONS (1)
  - Renal cell carcinoma [Unknown]

NARRATIVE: CASE EVENT DATE: 20240415
